FAERS Safety Report 5049060-8 (Version None)
Quarter: 2006Q3

REPORT INFORMATION
  Report Type: 
  Country: None (occurrence: None)
  Receive Date: 20060712
  Receipt Date: 20060228
  Transmission Date: 20061208
  Serious: No
  Sender: FDA-Public Use
  Company Number: US-GLAXOSMITHKLINE-A0596146A

PATIENT
  Sex: Female

DRUGS (1)
  1. IMITREX [Suspect]
     Indication: MIGRAINE
     Route: 048
     Dates: start: 20060219, end: 20060219

REACTIONS (6)
  - DRUG INEFFECTIVE [None]
  - MALAISE [None]
  - MIGRAINE [None]
  - NAUSEA [None]
  - STRESS [None]
  - VOMITING [None]
